FAERS Safety Report 23744163 (Version 1)
Quarter: 2024Q2

REPORT INFORMATION
  Report Type: Spontaneous
  Country: ES (occurrence: ES)
  Receive Date: 20240415
  Receipt Date: 20240415
  Transmission Date: 20240716
  Serious: Yes (Other)
  Sender: FDA-Public Use
  Company Number: ES-AEMPS-1477072

PATIENT
  Age: 79 Year
  Sex: Male

DRUGS (3)
  1. PREGABALIN [Suspect]
     Active Substance: PREGABALIN
     Indication: Spinal stenosis
     Dosage: 175 MILLIGRAM, DAILY
     Route: 048
     Dates: start: 20231229
  2. PREGABALIN [Suspect]
     Active Substance: PREGABALIN
     Dosage: 200 MILLIGRAM, DAILY
     Route: 048
     Dates: start: 20211217, end: 20231206
  3. PREGABALIN [Suspect]
     Active Substance: PREGABALIN
     Dosage: 275 MILLIGRAM, DAILY
     Route: 048
     Dates: start: 20231207, end: 20231229

REACTIONS (2)
  - Hallucination [Recovered/Resolved]
  - Somnolence [Recovering/Resolving]

NARRATIVE: CASE EVENT DATE: 20231222
